FAERS Safety Report 6675423-0 (Version None)
Quarter: 2010Q2

REPORT INFORMATION
  Report Type: 
  Country: None (occurrence: None)
  Receive Date: 20100409
  Receipt Date: 20100331
  Transmission Date: 20101027
  Serious: Yes (Hospitalization, Other)
  Sender: FDA-Public Use
  Company Number: US-AMGEN-QUU403190

PATIENT
  Sex: Female

DRUGS (1)
  1. ENBREL [Suspect]
     Indication: PSORIASIS
     Route: 058
     Dates: start: 20080101

REACTIONS (4)
  - COLON CANCER [None]
  - HEADACHE [None]
  - HYPOAESTHESIA [None]
  - VAGINAL HAEMORRHAGE [None]
